FAERS Safety Report 7314663-4 (Version None)
Quarter: 2011Q1

REPORT INFORMATION
  Report Type: 
  Country: None (occurrence: None)
  Receive Date: 20110225
  Receipt Date: 20101101
  Transmission Date: 20110831
  Serious: No
  Sender: FDA-Public Use
  Company Number: US-MYLANLABS-2010S1020125

PATIENT
  Age: 66 Year
  Sex: Male

DRUGS (5)
  1. FISH OIL [Concomitant]
  2. PRAVASTATIN [Concomitant]
  3. CLONAZEPAM [Concomitant]
  4. AMNESTEEM [Suspect]
     Indication: ACNE
     Route: 048
     Dates: start: 20100919, end: 20101001
  5. CETIRIZINE [Concomitant]

REACTIONS (3)
  - DRUG INEFFECTIVE [None]
  - DRY SKIN [None]
  - ACNE [None]
